FAERS Safety Report 7526466-6 (Version None)
Quarter: 2011Q2

REPORT INFORMATION
  Report Type: 
  Country: None (occurrence: None)
  Receive Date: 20110527
  Receipt Date: 20110517
  Transmission Date: 20111010
  Serious: Yes (Hospitalization, Other)
  Sender: FDA-Public Use
  Company Number: DSU-2011-02997

PATIENT
  Age: 51 Year
  Sex: Female
  Weight: 58.9676 kg

DRUGS (3)
  1. PLAVIX [Suspect]
     Indication: TRANSIENT ISCHAEMIC ATTACK
     Dosage: 75 MG (75 MG, QD, PER ORAL; 75 MG (75 MG, QD), PER ORAL
     Route: 048
     Dates: start: 20110401
  2. PLAVIX [Suspect]
     Indication: TRANSIENT ISCHAEMIC ATTACK
     Dosage: 75 MG (75 MG, QD, PER ORAL; 75 MG (75 MG, QD), PER ORAL
     Route: 048
     Dates: start: 20090101, end: 20110401
  3. WELCHOL [Suspect]
     Indication: LOW DENSITY LIPOPROTEIN INCREASED
     Dosage: 3.75 GM (3.75 GM, QD), PER ORAL
     Route: 048
     Dates: start: 20110406, end: 20110401

REACTIONS (2)
  - GASTROINTESTINAL ULCER [None]
  - GASTROINTESTINAL HAEMORRHAGE [None]
